FAERS Safety Report 6571857-3 (Version None)
Quarter: 2010Q1

REPORT INFORMATION
  Report Type: 
  Country: None (occurrence: None)
  Receive Date: 20100205
  Receipt Date: 20100126
  Transmission Date: 20100710
  Serious: Yes (Other)
  Sender: FDA-Public Use
  Company Number: GB-AMGEN-KDC388385

PATIENT
  Sex: Female

DRUGS (4)
  1. VECTIBIX [Suspect]
     Indication: GASTROOESOPHAGEAL CANCER
     Dates: start: 20091208
  2. EPIRUBICIN [Suspect]
     Dates: start: 20091208
  3. OXALIPLATIN [Suspect]
     Dates: start: 20091208
  4. CAPECITABINE [Suspect]
     Dates: start: 20091208

REACTIONS (1)
  - DEEP VEIN THROMBOSIS [None]
